FAERS Safety Report 19999528 (Version 1)
Quarter: 2021Q4

REPORT INFORMATION
  Report Type: Spontaneous
  Country: US (occurrence: US)
  Receive Date: 20211027
  Receipt Date: 20211027
  Transmission Date: 20220303
  Serious: Yes (Death, Hospitalization)
  Sender: FDA-Public Use
  Company Number: US-JNJFOC-20211027264

PATIENT
  Age: 41 Year
  Sex: Female
  Weight: 75 kg

DRUGS (4)
  1. ACETAMINOPHEN [Suspect]
     Active Substance: ACETAMINOPHEN
     Indication: Suicide attempt
     Dosage: ACETAMINOPHEN TOTAL DOSE 7500 MG
     Route: 048
     Dates: start: 19980220, end: 19980220
  2. TALACEN [Suspect]
     Active Substance: ACETAMINOPHEN\PENTAZOCINE HYDROCHLORIDE
     Indication: Product used for unknown indication
     Dosage: ACETAMINOPHEN 650 MG AND PENTAZOCINE HYDROCHLORIDE 25 MG
     Route: 048
     Dates: end: 19980220
  3. PROZAC [Concomitant]
     Active Substance: FLUOXETINE HYDROCHLORIDE
     Indication: Product used for unknown indication
     Dosage: 10 MG DAILY
     Route: 065
     Dates: end: 19980220
  4. TRAZODONE [Concomitant]
     Active Substance: TRAZODONE HYDROCHLORIDE
     Indication: Product used for unknown indication
     Route: 065
     Dates: end: 19980220

REACTIONS (6)
  - Completed suicide [Fatal]
  - Acute hepatic failure [Fatal]
  - Brain oedema [Fatal]
  - Staphylococcal infection [Fatal]
  - Blood creatinine increased [Fatal]
  - Intentional overdose [Fatal]
